FAERS Safety Report 6706930-X (Version None)
Quarter: 2010Q2

REPORT INFORMATION
  Report Type: 
  Country: None (occurrence: None)
  Receive Date: 20100503
  Receipt Date: 20100421
  Transmission Date: 20101027
  Serious: Yes (Death)
  Sender: FDA-Public Use
  Company Number: ES-PFIZER INC-2010045044

PATIENT
  Age: 65 Year
  Sex: Male
  Weight: 64 kg

DRUGS (14)
  1. CYTARABINE [Suspect]
     Indication: ACUTE MYELOID LEUKAEMIA
     Dosage: 170 MG, 1X/DAY
     Route: 042
     Dates: start: 20100318, end: 20100325
  2. IDARUBICIN HCL [Suspect]
     Indication: ACUTE MYELOID LEUKAEMIA
     Dosage: 20 MG, 1X/DAY
     Route: 042
     Dates: start: 20100319, end: 20100321
  3. MYLOTARG [Suspect]
     Indication: ACUTE MYELOID LEUKAEMIA
     Dosage: 5 MG, 1X/DAY
     Route: 042
     Dates: start: 20100318, end: 20100318
  4. ALMAGATE [Concomitant]
     Indication: PROPHYLAXIS
     Dosage: 4.5 G, 1X/DAY
     Route: 048
     Dates: start: 20100317, end: 20100402
  5. OMEPRAZOLE [Concomitant]
     Indication: PROPHYLAXIS
     Dosage: 20 MG, 1X/DAY
     Route: 048
     Dates: start: 20100312, end: 20100402
  6. LEVOTHYROXINE SODIUM [Concomitant]
     Indication: HYPOTHYROIDISM
     Dosage: 50 UG, 1X/DAY
     Route: 048
     Dates: start: 20100312, end: 20100402
  7. LEVOFLOXACIN [Concomitant]
     Indication: PROPHYLAXIS
     Dosage: 500 MG, 1X/DAY
     Dates: start: 20100313, end: 20100403
  8. SEGURIL [Concomitant]
     Indication: FLUID RETENTION
     Dosage: 250 MG, 1X/DAY
     Route: 042
     Dates: start: 20100317, end: 20100402
  9. CLEXANE [Concomitant]
     Indication: PROPHYLAXIS
     Dosage: 40 MG, 1X/DAY
     Route: 058
     Dates: end: 20100402
  10. DICLOFENAC [Concomitant]
     Indication: PAIN
     Dosage: 225 MG, 1X/DAY
     Route: 048
     Dates: start: 20100330, end: 20100403
  11. LORAZEPAM [Concomitant]
     Indication: PROPHYLAXIS
     Dosage: 1 MG, 1X/DAY
     Route: 048
     Dates: start: 20100313, end: 20100402
  12. HYDROCORTISONE [Concomitant]
     Dosage: 30 G, 1X/DAY
     Route: 062
     Dates: start: 20100330, end: 20100402
  13. AZTREONAM [Concomitant]
     Indication: PROPHYLAXIS
     Dosage: 3 G, 1X/DAY
     Route: 042
     Dates: end: 20100403
  14. AMIKACIN [Concomitant]
     Indication: PROPHYLAXIS
     Dosage: 1 G, 1X/DAY
     Route: 042
     Dates: start: 20100402, end: 20100402

REACTIONS (1)
  - HEPATIC FAILURE [None]
